FAERS Safety Report 6700705-3 (Version None)
Quarter: 2010Q2

REPORT INFORMATION
  Report Type: 
  Country: None (occurrence: None)
  Receive Date: 20100426
  Receipt Date: 20100408
  Transmission Date: 20101027
  Serious: Yes (Other)
  Sender: FDA-Public Use
  Company Number: 7001391

PATIENT
  Sex: Male

DRUGS (1)
  1. SAIZEN [Suspect]
     Dosage: 1.2 MG
     Dates: start: 20091101

REACTIONS (2)
  - DIALYSIS [None]
  - RENAL FAILURE [None]
